FAERS Safety Report 13503172 (Version 2)
Quarter: 2017Q2

REPORT INFORMATION
  Report Type: Spontaneous
  Country: US (occurrence: US)
  Receive Date: 20170502
  Receipt Date: 20170505
  Transmission Date: 20170830
  Serious: No
  Sender: FDA-Public Use
  Company Number: US-PFIZER INC-2017183795

PATIENT
  Age: 66 Year
  Sex: Male
  Weight: 99.79 kg

DRUGS (1)
  1. LYRICA [Suspect]
     Active Substance: PREGABALIN
     Indication: NEUROPATHY PERIPHERAL
     Dosage: 200 MG, 3X/DAY

REACTIONS (8)
  - Spondylitis [Unknown]
  - Osteoarthritis [Unknown]
  - Disease progression [Unknown]
  - Spinal osteoarthritis [Unknown]
  - Back pain [Unknown]
  - Drug prescribing error [Unknown]
  - Feeling hot [Unknown]
  - Gait disturbance [Unknown]

NARRATIVE: CASE EVENT DATE: 2016
